FAERS Safety Report 9521165 (Version 1)
Quarter: 2013Q1

REPORT INFORMATION
  Report Type: Spontaneous
  Country: US (occurrence: None)
  Receive Date: 20130305
  Receipt Date: 20130305
  Transmission Date: 20140127
  Serious: Yes (Hospitalization)
  Sender: FDA-Public Use
  Company Number: 163-21880-12080278

PATIENT
  Age: 78 Year
  Sex: Male

DRUGS (5)
  1. REVLIMID (LENALIDOMIDE) (CAPSULES) [Suspect]
     Indication: PLASMA CELL MYELOMA
     Dosage: 25 MG, 1 IN 1 D, PO
     Route: 048
     Dates: start: 201110, end: 2011
  2. NATEGLINIDE (NATEGLINIDE) (UNKNOWN) [Concomitant]
  3. MINOCYCLINE HCL (MINOCYCLINE HYDROCHLORIDE) (UNKNOWN) [Concomitant]
  4. LEVOTHYROXINE SODIUM (LEVOTHYROXINE SODIUM) (UNKNOWN) [Concomitant]
  5. VALACYCLOVIR HCL (VALACICLOVIR HYDROCHLORIDE) (UNKNOWN) [Concomitant]

REACTIONS (1)
  - Pancytopenia [None]
